FAERS Safety Report 7115180-7 (Version None)
Quarter: 2010Q4

REPORT INFORMATION
  Report Type: 
  Country: None (occurrence: None)
  Receive Date: 20101116
  Receipt Date: 20101116
  Transmission Date: 20110411
  Serious: Yes (Hospitalization)
  Sender: FDA-Public Use
  Company Number: None

PATIENT
  Age: 52 Year
  Sex: Male

DRUGS (1)
  1. LITHIUM CARBONATE [Suspect]
     Indication: BIPOLAR I DISORDER
     Dosage: 600 MG BID PO
     Route: 048
     Dates: start: 20090113, end: 20101112

REACTIONS (3)
  - CONFUSIONAL STATE [None]
  - DEHYDRATION [None]
  - THERAPEUTIC AGENT TOXICITY [None]
